FAERS Safety Report 6329786-6 (Version None)
Quarter: 2009Q3

REPORT INFORMATION
  Report Type: 
  Country: None (occurrence: None)
  Receive Date: 20090826
  Receipt Date: 20090818
  Transmission Date: 20100115
  Serious: Yes (Hospitalization, Other)
  Sender: FDA-Public Use
  Company Number: PHHY2009FI34792

PATIENT
  Age: 31 Year
  Sex: Male

DRUGS (4)
  1. CYCLOSPORINE [Suspect]
     Indication: STEM CELL TRANSPLANT
     Dosage: UNK
     Dates: start: 20030501, end: 20040801
  2. METHOTREXATE [Suspect]
     Indication: STEM CELL TRANSPLANT
     Dosage: UNK
     Dates: start: 20030501, end: 20040801
  3. CYCLOPHOSPHAMIDE [Concomitant]
     Indication: STEM CELL TRANSPLANT
     Dosage: UNK
  4. THYMOGLOBULIN [Concomitant]
     Indication: STEM CELL TRANSPLANT

REACTIONS (14)
  - ACUTE GRAFT VERSUS HOST DISEASE IN SKIN [None]
  - CANDIDIASIS [None]
  - CENTRAL NERVOUS SYSTEM LESION [None]
  - CEREBRAL FUNGAL INFECTION [None]
  - COMA [None]
  - CONVULSION [None]
  - DEPRESSED LEVEL OF CONSCIOUSNESS [None]
  - DISORIENTATION [None]
  - DRUG INTERACTION [None]
  - DRUG LEVEL DECREASED [None]
  - IMMUNE RECONSTITUTION SYNDROME [None]
  - MECHANICAL VENTILATION [None]
  - MYOCLONIC EPILEPSY [None]
  - PNEUMOCYSTIS JIROVECI PNEUMONIA [None]
